FAERS Safety Report 12840328 (Version 12)
Quarter: 2019Q2

REPORT INFORMATION
  Report Type: Spontaneous
  Country: CA (occurrence: CA)
  Receive Date: 20161012
  Receipt Date: 20190513
  Transmission Date: 20190711
  Serious: Yes (Other)
  Sender: FDA-Public Use
  Company Number: CA-PFIZER INC-2016467131

PATIENT
  Age: 38 Year
  Sex: Female
  Weight: 58 kg

DRUGS (15)
  1. LABETALOL HYDROCHLORIDE. [Suspect]
     Active Substance: LABETALOL HYDROCHLORIDE
     Dosage: 20 MILLIGRAM, BID
     Route: 048
  2. DICLECTIN [Suspect]
     Active Substance: DOXYLAMINE SUCCINATE\PYRIDOXINE HYDROCHLORIDE
     Indication: NAUSEA
     Dosage: ONE EVERY DAY
     Route: 065
  3. FOLIC ACID. [Concomitant]
     Active Substance: FOLIC ACID
     Dosage: UNK
     Route: 065
  4. CELECOXIB. [Suspect]
     Active Substance: CELECOXIB
     Dosage: 10 MG, UNK
     Route: 048
  5. ASACOL [Suspect]
     Active Substance: MESALAMINE
     Dosage: 3200 MILLIGRAM, QD
     Route: 048
  6. CITALOPRAM [Suspect]
     Active Substance: CITALOPRAM HYDROBROMIDE
     Dosage: 15 MILLIGRAM, QD
     Route: 048
  7. LABETALOL HYDROCHLORIDE. [Suspect]
     Active Substance: LABETALOL HYDROCHLORIDE
     Dosage: 300 MILLIGRAM, QD
     Route: 048
  8. REMICADE [Suspect]
     Active Substance: INFLIXIMAB
     Indication: CROHN^S DISEASE
     Dosage: 600 MILLIGRAM, CYCLIC (Q8WEEKS)
     Route: 042
  9. LABETALOL HYDROCHLORIDE. [Suspect]
     Active Substance: LABETALOL HYDROCHLORIDE
     Dosage: 150 MILLIGRAM, BID
     Route: 048
  10. ASACOL [Suspect]
     Active Substance: MESALAMINE
     Dosage: 4800 MILLIGRAM, QD
     Route: 048
  11. FLOVENT [Suspect]
     Active Substance: FLUTICASONE PROPIONATE
     Dosage: UNK UNK, BID
     Route: 065
  12. PANTOPRAZOLE [Suspect]
     Active Substance: PANTOPRAZOLE
     Dosage: 1 DF, 1X/DAY
     Route: 048
  13. LABETALOL HYDROCHLORIDE. [Suspect]
     Active Substance: LABETALOL HYDROCHLORIDE
     Dosage: 40 MILLIGRAM, QD
     Route: 048
  14. SYNTHROID [Suspect]
     Active Substance: LEVOTHYROXINE SODIUM
     Dosage: 37 UG, QD
     Route: 048
  15. SYNTHROID [Suspect]
     Active Substance: LEVOTHYROXINE SODIUM
     Dosage: 50 MILLIGRAM, QD
     Route: 048

REACTIONS (7)
  - Diarrhoea [Not Recovered/Not Resolved]
  - Transaminases increased [Not Recovered/Not Resolved]
  - Product use issue [Unknown]
  - Wrong technique in product usage process [Unknown]
  - Nausea [Not Recovered/Not Resolved]
  - Inappropriate schedule of product administration [Unknown]
  - Frequent bowel movements [Not Recovered/Not Resolved]
